FAERS Safety Report 8463053-X (Version None)
Quarter: 2012Q2

REPORT INFORMATION
  Report Type: 
  Country: None (occurrence: None)
  Receive Date: 20120625
  Receipt Date: 20100111
  Transmission Date: 20120825
  Serious: Yes (Other)
  Sender: FDA-Public Use
  Company Number: US-ROCHE-676734

PATIENT
  Sex: Female

DRUGS (1)
  1. BONIVA [Suspect]
     Indication: OSTEOPOROSIS
     Dosage: FORM: INFUSION; DURATION: FOR A YEAR OR TWO
     Route: 042
     Dates: start: 20071001, end: 20081101

REACTIONS (2)
  - TREATMENT FAILURE [None]
  - ARTERIOSCLEROSIS CORONARY ARTERY [None]
